FAERS Safety Report 10481082 (Version 1)
Quarter: 2014Q3

REPORT INFORMATION
  Report Type: Spontaneous
  Country: US (occurrence: US)
  Receive Date: 20140929
  Receipt Date: 20140929
  Transmission Date: 20150326
  Serious: No
  Sender: FDA-Public Use
  Company Number: US-PFIZER INC-2014267714

PATIENT
  Sex: Male

DRUGS (22)
  1. LYRICA [Suspect]
     Active Substance: PREGABALIN
     Dosage: 150 MG, 1X/DAY
     Dates: start: 2014, end: 2014
  2. LYRICA [Suspect]
     Active Substance: PREGABALIN
     Dosage: 150 MG, 3X/DAY
     Dates: start: 2014, end: 2014
  3. GABAPENTIN. [Concomitant]
     Active Substance: GABAPENTIN
     Dosage: 900 MG, 3X/DAY (300 MG 3 IN THE MORNING, 3 AT NOON AND 3 AT NIGHT)
  4. NU-IRON [Concomitant]
     Dosage: 150 MG, 2X/DAY
  5. PROPRANOLOL [Concomitant]
     Active Substance: PROPRANOLOL\PROPRANOLOL HYDROCHLORIDE
     Dosage: 20 MG, 2X/DAY
  6. SYNTHROID [Concomitant]
     Active Substance: LEVOTHYROXINE SODIUM
     Dosage: 0.125 MG, IN MORNING
  7. TESTOSTERONE. [Concomitant]
     Active Substance: TESTOSTERONE
     Dosage: 1 MG, (EVERY 2 WEEKS)
  8. LIPITOR [Concomitant]
     Active Substance: ATORVASTATIN CALCIUM
     Dosage: 40 MG AT BED TIME
  9. FLOMAX [Concomitant]
     Active Substance: TAMSULOSIN HYDROCHLORIDE
     Dosage: 4 MG, 2 AT BEDTIME
  10. ARTHROTEC [Concomitant]
     Active Substance: DICLOFENAC SODIUM\MISOPROSTOL
     Dosage: ^75-200 MG^ 1 AT MORNING AND 1 AT NIGHT
  11. BABY ASPIRIN [Concomitant]
     Active Substance: ASPIRIN
     Dosage: 81 MG, AT BED TIME
  12. NOVOLIN N [Concomitant]
     Active Substance: INSULIN HUMAN
     Indication: DIABETES MELLITUS
     Dosage: 10 UNITS IN MORNING AND 15 UNITS AT NIGHT
  13. LOSARTAN POTASSIUM. [Concomitant]
     Active Substance: LOSARTAN POTASSIUM
     Dosage: 25 MG, 1X/DAY (ONCE IN MORNING)
  14. MORPHINE SULPHATE [Concomitant]
     Active Substance: MORPHINE SULFATE
     Dosage: 15 MG, 4X/DAY
  15. LYRICA [Suspect]
     Active Substance: PREGABALIN
     Dosage: 75 MG, 3X/DAY
     Dates: start: 2014, end: 2014
  16. WARFARIN [Concomitant]
     Active Substance: WARFARIN
     Dosage: 7.5 MG ON MONDAY AND FRIDAY AND 10 MG ON THE REST OF THE DAYS
  17. NYSTATIN. [Concomitant]
     Active Substance: NYSTATIN
     Dosage: 100 IU, 2X/DAY
  18. TEMAZEPAM. [Concomitant]
     Active Substance: TEMAZEPAM
     Dosage: 15 MG, UNK (EITHER 1 OR 2 AT BED TIME)
  19. FLUTICASONE [Concomitant]
     Active Substance: FLUTICASONE\FLUTICASONE PROPIONATE
     Dosage: UNK
  20. LYRICA [Suspect]
     Active Substance: PREGABALIN
     Indication: NEURALGIA
     Dosage: 75 MG, 1X/DAY
     Dates: start: 2014, end: 2014
  21. LYRICA [Suspect]
     Active Substance: PREGABALIN
     Dosage: 75 MG, 2X/DAY
     Dates: start: 2014, end: 2014
  22. MORPHINE SULFATE. [Concomitant]
     Active Substance: MORPHINE SULFATE
     Dosage: 1 FOR 15 MG AND OTHER WAS 30 MG 3 TIMES A DAY

REACTIONS (2)
  - Pain [Not Recovered/Not Resolved]
  - Drug ineffective [Not Recovered/Not Resolved]

NARRATIVE: CASE EVENT DATE: 2014
